FAERS Safety Report 7951609-X (Version None)
Quarter: 2011Q4

REPORT INFORMATION
  Report Type: 
  Country: None (occurrence: None)
  Receive Date: 20111130
  Receipt Date: 20111130
  Transmission Date: 20120403
  Serious: Yes (Other)
  Sender: FDA-Public Use
  Company Number: None

PATIENT
  Sex: Female

DRUGS (1)
  1. ENBREL [Suspect]
     Indication: PSORIASIS
     Dosage: 50 MG TWICE WEEK SQ
     Route: 058
     Dates: start: 20110923, end: 20111122

REACTIONS (3)
  - WHEEZING [None]
  - JOINT SWELLING [None]
  - DYSPNOEA [None]
